FAERS Safety Report 8793291 (Version 2)
Quarter: 2012Q4

REPORT INFORMATION
  Report Type: 
  Country: US (occurrence: US)
  Receive Date: 20120917
  Receipt Date: 20120928
  Transmission Date: 20130627
  Serious: Yes (Other)
  Sender: FDA-Public Use
  Company Number: US-PFIZER INC-2012227284

PATIENT
  Age: 49 Year
  Sex: Female
  Weight: 48.07 kg

DRUGS (4)
  1. LYRICA [Suspect]
     Indication: FIBROMYALGIA
     Dosage: 50 mg, 3x/day
     Route: 048
  2. LYRICA [Suspect]
     Dosage: UNK
     Route: 048
  3. OXYCODONE [Concomitant]
     Dosage: 30 mg, as needed
  4. FENTANYL [Concomitant]
     Dosage: 100 ug, as needed

REACTIONS (1)
  - Back disorder [Unknown]
